FAERS Safety Report 7511180-3 (Version None)
Quarter: 2011Q2

REPORT INFORMATION
  Report Type: 
  Country: None (occurrence: None)
  Receive Date: 20110531
  Receipt Date: 20110517
  Transmission Date: 20111010
  Serious: Yes (Hospitalization, Other)
  Sender: FDA-Public Use
  Company Number: PHHY2011RO42791

PATIENT
  Age: 54 Year
  Sex: Male

DRUGS (1)
  1. CLOZAPINE [Suspect]
     Indication: SCHIZOPHRENIA, PARANOID TYPE
     Dates: start: 20070101

REACTIONS (8)
  - DELUSION [None]
  - AGGRESSION [None]
  - SENSORY DISTURBANCE [None]
  - IMPULSIVE BEHAVIOUR [None]
  - INSOMNIA [None]
  - PSYCHOMOTOR HYPERACTIVITY [None]
  - HALLUCINATION [None]
  - DELIRIUM [None]
